FAERS Safety Report 5783615-8 (Version None)
Quarter: 2008Q2

REPORT INFORMATION
  Report Type: 
  Country: None (occurrence: None)
  Receive Date: 20080605
  Receipt Date: 20080320
  Transmission Date: 20081010
  Serious: No
  Sender: FDA-Public Use
  Company Number: A0716596A

PATIENT
  Age: 65 Year
  Sex: Female

DRUGS (7)
  1. ALLI [Suspect]
  2. ATENOLOL [Concomitant]
  3. HYDROCHLOROTHIAZIDE [Concomitant]
  4. OMEGA 3 FATTY ACID [Concomitant]
  5. MULTI-VITAMIN [Concomitant]
  6. CALCIUM [Concomitant]
  7. GLUCOSAMINE [Concomitant]

REACTIONS (1)
  - INSOMNIA [None]
